FAERS Safety Report 16678567 (Version 2)
Quarter: 2019Q4

REPORT INFORMATION
  Report Type: Spontaneous
  Country: IT (occurrence: IT)
  Receive Date: 20190807
  Receipt Date: 20191004
  Transmission Date: 20200122
  Serious: Yes (Other)
  Sender: FDA-Public Use
  Company Number: IT-EISAI MEDICAL RESEARCH-EC-2019-059800

PATIENT
  Age: 24 Year
  Sex: Female

DRUGS (5)
  1. FYCOMPA [Suspect]
     Active Substance: PERAMPANEL
     Indication: ENCEPHALOPATHY
     Route: 048
     Dates: start: 20161114, end: 20190414
  2. TEGRETOL [Concomitant]
     Active Substance: CARBAMAZEPINE
     Indication: EPILEPTIC ENCEPHALOPATHY
     Dosage: FREQUENCY UNKNOWN
     Route: 048
     Dates: start: 20150101, end: 20190709
  3. INOVELON [Concomitant]
     Active Substance: RUFINAMIDE
     Indication: EPILEPTIC ENCEPHALOPATHY
     Dosage: FREQUENCY UNKNOWN
     Route: 048
  4. FRISIUM [Concomitant]
     Active Substance: CLOBAZAM
     Indication: EPILEPTIC ENCEPHALOPATHY
     Dosage: FREQUENCY UNKNOWN
     Route: 048
  5. DEPAKIN [Concomitant]
     Active Substance: VALPROATE SODIUM
     Indication: ENCEPHALOPATHY
     Dosage: FREQUENCY UNKNOWN
     Route: 048

REACTIONS (2)
  - Aggression [Recovered/Resolved]
  - Psychomotor hyperactivity [Recovered/Resolved]

NARRATIVE: CASE EVENT DATE: 20190214
